FAERS Safety Report 13408423 (Version 1)
Quarter: 2017Q2

REPORT INFORMATION
  Report Type: Spontaneous
  Country: US (occurrence: US)
  Receive Date: 20170405
  Receipt Date: 20170405
  Transmission Date: 20170830
  Serious: Yes (Disabling)
  Sender: FDA-Public Use
  Company Number: None

PATIENT
  Age: 63 Year
  Sex: Female
  Weight: 72 kg

DRUGS (4)
  1. HCTZ [Concomitant]
     Active Substance: HYDROCHLOROTHIAZIDE
  2. MULTIVITAMIN [Concomitant]
     Active Substance: VITAMINS
  3. BUPROPION HYDROCHLORIDE XL [Suspect]
     Active Substance: BUPROPION HYDROCHLORIDE
     Indication: DEPRESSION
     Dosage: ?          QUANTITY:90 TABLET(S);?
     Route: 048
     Dates: start: 20160502, end: 20161101
  4. VITAMIN D3 [Concomitant]
     Active Substance: CHOLECALCIFEROL

REACTIONS (5)
  - Nausea [None]
  - Drug ineffective [None]
  - Product odour abnormal [None]
  - Product substitution issue [None]
  - Withdrawal syndrome [None]
